FAERS Safety Report 5665153-6 (Version None)
Quarter: 2008Q1

REPORT INFORMATION
  Report Type: 
  Country: None (occurrence: None)
  Receive Date: 20080314
  Receipt Date: 20080304
  Transmission Date: 20080703
  Serious: Yes (Hospitalization)
  Sender: FDA-Public Use
  Company Number: JP-PFIZER INC-2008021895

PATIENT
  Age: 71 Year
  Sex: Female

DRUGS (1)
  1. CELECOX [Suspect]
     Indication: BACK PAIN
     Route: 048

REACTIONS (5)
  - ALTERED STATE OF CONSCIOUSNESS [None]
  - HEADACHE [None]
  - NAUSEA [None]
  - PYREXIA [None]
  - VOMITING [None]
